FAERS Safety Report 8431957-X (Version None)
Quarter: 2012Q2

REPORT INFORMATION
  Report Type: 
  Country: None (occurrence: None)
  Receive Date: 20120613
  Receipt Date: 20110913
  Transmission Date: 20120825
  Serious: No
  Sender: FDA-Public Use
  Company Number: US-ASTRAZENECA-2011SE41690

PATIENT
  Age: 43 Year
  Sex: Female

DRUGS (3)
  1. ALLEGRA [Concomitant]
  2. RHINOCORT [Suspect]
     Route: 045
  3. NASONEX [Concomitant]

REACTIONS (9)
  - CEREBRAL ATROPHY [None]
  - ARTHRITIS [None]
  - DRUG DOSE OMISSION [None]
  - MOBILITY DECREASED [None]
  - NERVOUS SYSTEM DISORDER [None]
  - FIBROMYALGIA [None]
  - MIGRAINE [None]
  - CONFUSIONAL STATE [None]
  - MEMORY IMPAIRMENT [None]
